FAERS Safety Report 18260808 (Version 1)
Quarter: 2020Q3

REPORT INFORMATION
  Report Type: Spontaneous
  Country: US (occurrence: US)
  Receive Date: 20200914
  Receipt Date: 20200914
  Transmission Date: 20201103
  Serious: Yes (Life-Threatening, Hospitalization, Other)
  Sender: FDA-Public Use
  Company Number: US-LUPIN PHARMACEUTICALS INC.-2020-05850

PATIENT
  Age: 37 Year
  Sex: Female

DRUGS (3)
  1. XELJANZ [Concomitant]
     Active Substance: TOFACITINIB CITRATE
     Indication: DRUG REACTION WITH EOSINOPHILIA AND SYSTEMIC SYMPTOMS
     Dosage: 10 MILLIGRAM
     Route: 065
     Dates: start: 201508
  2. MINOCYCLINE [Suspect]
     Active Substance: MINOCYCLINE HYDROCHLORIDE
     Indication: ACNE
     Dosage: UNK
     Route: 065
     Dates: start: 20150507, end: 20150602
  3. XELJANZ [Concomitant]
     Active Substance: TOFACITINIB CITRATE
     Indication: EOSINOPHILIC MYOCARDITIS
     Dosage: 5 MILLIGRAM
     Route: 065

REACTIONS (7)
  - Drug reaction with eosinophilia and systemic symptoms [Recovered/Resolved]
  - Cardiogenic shock [Recovered/Resolved]
  - Paraplegia [Unknown]
  - Cardiac failure [Recovered/Resolved]
  - Hepatitis [Unknown]
  - Eosinophilic myocarditis [Recovered/Resolved]
  - Metastases to meninges [Unknown]
